FAERS Safety Report 5476549-X (Version None)
Quarter: 2007Q3

REPORT INFORMATION
  Report Type: 
  Country: None (occurrence: None)
  Receive Date: 20070926
  Receipt Date: 20070430
  Transmission Date: 20080115
  Serious: Yes (Other)
  Sender: FDA-Public Use
  Company Number: 2007035593

PATIENT
  Age: 47 Year
  Sex: Female
  Weight: 61 kg

DRUGS (4)
  1. ZYRTEC [Suspect]
     Indication: PRURITUS
     Dosage: 10 MG (10 MG, 1 IN 1 D)
     Dates: start: 20070430
  2. ZYRTEC [Suspect]
     Indication: URTICARIA
     Dosage: 10 MG (10 MG, 1 IN 1 D)
     Dates: start: 20070430
  3. ALL OTHER THERAPEUTIC PRODUCTS (ALL OTHER THERAPEUTIC PRODUCTS) [Concomitant]
  4. LEVOXYL [Concomitant]

REACTIONS (4)
  - BLISTER [None]
  - SKIN NODULE [None]
  - VASODILATATION [None]
  - VEIN DISORDER [None]
